FAERS Safety Report 6151917-1 (Version None)
Quarter: 2009Q2

REPORT INFORMATION
  Report Type: 
  Country: None (occurrence: None)
  Receive Date: 20090410
  Receipt Date: 20090406
  Transmission Date: 20091009
  Serious: Yes (Hospitalization, Other)
  Sender: FDA-Public Use
  Company Number: US-MERCK-0904USA00112

PATIENT
  Age: 75 Year
  Sex: Male

DRUGS (12)
  1. ZOCOR [Suspect]
     Route: 048
  2. LYRICA [Suspect]
     Indication: POST HERPETIC NEURALGIA
     Route: 065
     Dates: start: 20071101, end: 20080901
  3. LYRICA [Suspect]
     Route: 065
     Dates: start: 20080901, end: 20081001
  4. LISINOPRIL [Concomitant]
     Route: 048
  5. WARFARIN SODIUM [Concomitant]
     Route: 065
  6. COREG [Concomitant]
     Route: 065
  7. NIACIN [Concomitant]
     Route: 065
  8. FOSAMAX [Concomitant]
     Route: 048
  9. POTASSIUM (UNSPECIFIED) [Concomitant]
     Route: 065
  10. CALCIUM (UNSPECIFIED) [Concomitant]
     Route: 065
  11. LASIX [Concomitant]
     Route: 065
  12. XANAX [Concomitant]
     Route: 065

REACTIONS (6)
  - BLOOD CREATINE PHOSPHOKINASE INCREASED [None]
  - DRUG INTERACTION [None]
  - MALAISE [None]
  - MUSCLE ATROPHY [None]
  - RENAL FAILURE [None]
  - VITAMIN B1 INCREASED [None]
